FAERS Safety Report 26127006 (Version 1)
Quarter: 2025Q4

REPORT INFORMATION
  Report Type: Spontaneous
  Country: US (occurrence: US)
  Receive Date: 20251205
  Receipt Date: 20251205
  Transmission Date: 20260118
  Serious: No
  Sender: PRIMUS PHARMACEUTICALS
  Company Number: US-PRIMUS-2025-US-017360

PATIENT
  Age: 44 Year
  Sex: Female

DRUGS (5)
  1. IMPOYZ [Suspect]
     Active Substance: CLOBETASOL PROPIONATE
     Indication: Eczema
     Dosage: APPLY A THIN LAYER TOPICALLY TO THE AFFECTED AREA(S) TWICE DAILY FOR 2-4 WEEKS AS NEEDED.
     Route: 061
     Dates: start: 20250315, end: 20250319
  2. AZELASTINE [Concomitant]
     Active Substance: AZELASTINE
  3. IPRATROPIUM BROMIDE [Concomitant]
     Active Substance: IPRATROPIUM BROMIDE
  4. ALLEGRA [Concomitant]
     Active Substance: FEXOFENADINE HYDROCHLORIDE
  5. LOSARTAN [Concomitant]
     Active Substance: LOSARTAN

REACTIONS (5)
  - Application site inflammation [Recovered/Resolved]
  - Application site erythema [Recovered/Resolved]
  - Pustule [Recovered/Resolved]
  - Eczema [Recovered/Resolved]
  - Off label use [Recovered/Resolved]
